FAERS Safety Report 24924329 (Version 2)
Quarter: 2025Q1

REPORT INFORMATION
  Report Type: Spontaneous
  Country: BG (occurrence: BG)
  Receive Date: 20250204
  Receipt Date: 20250221
  Transmission Date: 20250409
  Serious: Yes (Other)
  Sender: BOEHRINGER INGELHEIM
  Company Number: BG-BoehringerIngelheim-2025-BI-006544

PATIENT
  Age: 88 Year
  Sex: Male

DRUGS (3)
  1. TAMSULOSIN HYDROCHLORIDE [Suspect]
     Active Substance: TAMSULOSIN HYDROCHLORIDE
     Indication: Benign prostatic hyperplasia
  2. TELMISARTAN [Suspect]
     Active Substance: TELMISARTAN
     Indication: Hypertension
     Dosage: 80 MG PRESCRIBED AS ONE TABLET IN THE MORNING AND HALF A TABLET IN THE EVENING FOR THE PAST 5-6 YEARS
  3. TELMISARTAN [Suspect]
     Active Substance: TELMISARTAN
     Dosage: IN THE MORNING

REACTIONS (2)
  - Keratoacanthoma [Recovering/Resolving]
  - Actinic keratosis [Recovering/Resolving]
